FAERS Safety Report 8120574-7 (Version None)
Quarter: 2012Q1

REPORT INFORMATION
  Report Type: 
  Country: None (occurrence: None)
  Receive Date: 20120207
  Receipt Date: 20120127
  Transmission Date: 20120608
  Serious: Yes (Hospitalization)
  Sender: FDA-Public Use
  Company Number: FR-PFIZER INC-2009272672

PATIENT
  Age: 85 Year
  Sex: Male

DRUGS (13)
  1. GABAPENTIN [Suspect]
     Indication: GAIT DISTURBANCE
     Dosage: 300 MG, 3X/DAY
     Route: 048
     Dates: start: 20090201, end: 20090309
  2. RAMIPRIL [Suspect]
     Dosage: 5 MG, 2X/DAY
     Route: 048
     Dates: end: 20090309
  3. ALLOPURINOL [Concomitant]
  4. CELECTOL [Suspect]
     Dosage: 100 MG, 1X/DAY
     Route: 048
     Dates: end: 20090309
  5. SERC [Concomitant]
  6. FUROSEMIDE [Concomitant]
  7. POTASSIUM CHLORIDE [Concomitant]
  8. SIMVASTATIN [Concomitant]
  9. ASPIRIN [Concomitant]
  10. ISOSORBIDE MONONITRATE [Suspect]
     Dosage: 40 MG, 2X/DAY
     Route: 048
     Dates: end: 20090309
  11. ALDACTONE [Suspect]
     Dosage: 25 MG, 1X/DAY
     Route: 048
     Dates: end: 20090309
  12. PLAVIX [Concomitant]
  13. MODOPAR [Suspect]
     Indication: GAIT DISTURBANCE
     Dosage: 100/25 MG, 3X/DAY
     Route: 048
     Dates: start: 20090201, end: 20090309

REACTIONS (2)
  - HYPOTENSION [None]
  - BRADYCARDIA [None]
